FAERS Safety Report 4575405-9 (Version None)
Quarter: 2005Q1

REPORT INFORMATION
  Report Type: 
  Country: None (occurrence: None)
  Receive Date: 20050128
  Receipt Date: 20050128
  Transmission Date: 20050727
  Serious: Yes (Other)
  Sender: FDA-Public Use
  Company Number: None

PATIENT
  Age: 68 Year
  Sex: Male
  Weight: 81.6475 kg

DRUGS (1)
  1. CELEBREX [Suspect]
     Indication: COLON CANCER
     Dosage: 1 PER DAY
     Dates: start: 20030729, end: 20040929

REACTIONS (3)
  - CHEST PAIN [None]
  - FEELING ABNORMAL [None]
  - PAIN [None]
